FAERS Safety Report 9602553 (Version 1)
Quarter: 2013Q4

REPORT INFORMATION
  Report Type: Spontaneous
  Country: US (occurrence: US)
  Receive Date: 20131007
  Receipt Date: 20131007
  Transmission Date: 20140711
  Serious: No
  Sender: FDA-Public Use
  Company Number: US-PFIZER INC-2013283913

PATIENT
  Age: 66 Year
  Sex: Male
  Weight: 80.73 kg

DRUGS (1)
  1. DILANTIN-125 [Suspect]
     Dosage: 300 MG, 1X/DAY
     Dates: start: 1958

REACTIONS (2)
  - Hypoaesthesia [Unknown]
  - Hypoaesthesia [Unknown]
